FAERS Safety Report 18324511 (Version 1)
Quarter: 2020Q3

REPORT INFORMATION
  Report Type: Spontaneous
  Country: DE (occurrence: DE)
  Receive Date: 20200929
  Receipt Date: 20200929
  Transmission Date: 20201103
  Serious: Yes (Life-Threatening, Hospitalization)
  Sender: FDA-Public Use
  Company Number: DE-MYLANLABS-2020M1081305

PATIENT
  Age: 59 Year
  Sex: Female

DRUGS (21)
  1. RAMIPRIL. [Suspect]
     Active Substance: RAMIPRIL
     Indication: PRODUCT USED FOR UNKNOWN INDICATION
     Dosage: 2.5 MG, 1?0?0?0
  2. LAMOTRIGIN [Concomitant]
     Active Substance: LAMOTRIGINE
     Dosage: 100 MG, 1.5?0?1.25?0
  3. MELPERON [Concomitant]
     Active Substance: MELPERONE
     Dosage: 25 MG, 0?0?0?1, SAFT
  4. HYDROCORTISONE. [Suspect]
     Active Substance: HYDROCORTISONE
     Indication: PRODUCT USED FOR UNKNOWN INDICATION
     Dosage: 60 MG, 1?0?0?0
  5. FRISIUM [Concomitant]
     Active Substance: CLOBAZAM
     Dosage: 10 MG, 0?0?0.5?0
  6. ZONISAMIDE. [Concomitant]
     Active Substance: ZONISAMIDE
     Dosage: 100 MG, 1?0?2?0
  7. CLEXANE [Concomitant]
     Active Substance: ENOXAPARIN SODIUM
     Dosage: 80 MG, 0?0?1?0
     Route: 058
  8. ASTONIN                            /00213101/ [Concomitant]
     Dosage: 0.1 MG, 1?0?0?0
  9. VITAMIN B12 [Concomitant]
     Active Substance: CYANOCOBALAMIN
     Dosage: NK MG, 1?0?1?0
  10. ARANESP [Concomitant]
     Active Substance: DARBEPOETIN ALFA
     Dosage: 80 ?G, DONNERSTAG
  11. FYCOMPA [Concomitant]
     Active Substance: PERAMPANEL
     Dosage: 2 MG, 1?0?0?0
  12. PANTOPRAZOL                        /01263201/ [Concomitant]
     Active Substance: PANTOPRAZOLE
     Dosage: 40 MG, 0?0?1?0
  13. KALINOR RETARD P [Concomitant]
     Active Substance: POTASSIUM CHLORIDE
     Dosage: 600 MG, 1?2?1?0
  14. SPIRONOLACTONE. [Suspect]
     Active Substance: SPIRONOLACTONE
     Indication: PRODUCT USED FOR UNKNOWN INDICATION
     Dosage: 100 MG, 1?0?1?0
  15. BICANORM [Concomitant]
     Active Substance: SODIUM BICARBONATE
     Dosage: 2 G, 1?1?1?0
  16. DOCITON [Concomitant]
     Active Substance: PROPRANOLOL HYDROCHLORIDE
     Dosage: 10 MG, 2.5?2.5?0?2.5
  17. BRIVARACETAM [Concomitant]
     Active Substance: BRIVARACETAM
     Dosage: 100 MG, 1?0?1?0
  18. LEVOTHYROXINENATRIUM TEVA [Concomitant]
     Dosage: 225 ?G, 1?0?0?0
  19. SIMETHICONE (DIMETHICONE) [Concomitant]
     Active Substance: DIMETHICONE
     Dosage: 5 ML, 1?1?1?1
  20. TORASEMIDE [Suspect]
     Active Substance: TORSEMIDE
     Indication: PRODUCT USED FOR UNKNOWN INDICATION
     Dosage: 20 MG, 1?1?0?0
  21. HYDROCORTISONE. [Suspect]
     Active Substance: HYDROCORTISONE
     Dosage: 40 MG, 0?1?0?0

REACTIONS (4)
  - Hyperglycaemia [Recovering/Resolving]
  - Condition aggravated [Recovering/Resolving]
  - General physical health deterioration [Recovering/Resolving]
  - Depressed level of consciousness [Recovering/Resolving]
